FAERS Safety Report 7927431-7 (Version None)
Quarter: 2011Q4

REPORT INFORMATION
  Report Type: 
  Country: None (occurrence: None)
  Receive Date: 20111118
  Receipt Date: 20111115
  Transmission Date: 20120403
  Serious: Yes (Death, Hospitalization)
  Sender: FDA-Public Use
  Company Number: PHEH2011US07257

PATIENT
  Sex: Male

DRUGS (1)
  1. TASIGNA [Suspect]
     Indication: CHRONIC MYELOID LEUKAEMIA
     Dosage: 400 MG, BID
     Route: 048
     Dates: start: 20110517

REACTIONS (6)
  - LARGE INTESTINE PERFORATION [None]
  - HYPERHIDROSIS [None]
  - DEATH [None]
  - INFECTION [None]
  - OEDEMA [None]
  - PAIN [None]
